FAERS Safety Report 18762351 (Version 3)
Quarter: 2021Q1

REPORT INFORMATION
  Report Type: Other
  Country: NL (occurrence: NL)
  Receive Date: 20210120
  Receipt Date: 20210126
  Transmission Date: 20210419
  Serious: Yes (Other)
  Sender: FDA-Public Use
  Company Number: NL-ASTELLAS-2021US001730

PATIENT
  Age: 76 Year
  Sex: Male

DRUGS (10)
  1. BETMIGA [Suspect]
     Active Substance: MIRABEGRON
     Route: 065
     Dates: start: 20201203, end: 20201208
  2. SINEMET [Concomitant]
     Active Substance: CARBIDOPA\LEVODOPA
     Indication: PRODUCT USED FOR UNKNOWN INDICATION
     Dosage: 1 DF (50/12 MG), UNKNOWN FREQ.
     Route: 065
  3. BETMIGA [Suspect]
     Active Substance: MIRABEGRON
     Indication: MICTURITION URGENCY
     Route: 065
  4. SERTRALINE [Concomitant]
     Active Substance: SERTRALINE HYDROCHLORIDE
     Indication: PRODUCT USED FOR UNKNOWN INDICATION
     Route: 065
  5. CLOZAPINE. [Concomitant]
     Active Substance: CLOZAPINE
     Indication: PRODUCT USED FOR UNKNOWN INDICATION
     Route: 065
  6. MACROGOL [Concomitant]
     Active Substance: POLYETHYLENE GLYCOLS
     Indication: PRODUCT USED FOR UNKNOWN INDICATION
     Dosage: 10 G, UNKNOWN FREQ. (POWDER FOR DRINK)
     Route: 065
  7. ENALAPRIL [Concomitant]
     Active Substance: ENALAPRIL
     Indication: PRODUCT USED FOR UNKNOWN INDICATION
     Route: 065
  8. RIVASTIGMINE. [Concomitant]
     Active Substance: RIVASTIGMINE
     Indication: PRODUCT USED FOR UNKNOWN INDICATION
     Dosage: 9.5 MG, ONCE DAILY (PATCH PER 24 HOUR PERIOD)
     Route: 065
  9. FAMOTIDINE. [Concomitant]
     Active Substance: FAMOTIDINE
     Indication: PRODUCT USED FOR UNKNOWN INDICATION
     Route: 065
  10. AMLODIPINE [Concomitant]
     Active Substance: AMLODIPINE BESYLATE
     Indication: PRODUCT USED FOR UNKNOWN INDICATION
     Route: 065

REACTIONS (4)
  - Hyperventilation [Unknown]
  - Hallucination [Recovered/Resolved]
  - Confusional state [Unknown]
  - Cognitive disorder [Recovered/Resolved]

NARRATIVE: CASE EVENT DATE: 20201204
